FAERS Safety Report 20705847 (Version 2)
Quarter: 2024Q1

REPORT INFORMATION
  Report Type: Spontaneous
  Country: US (occurrence: US)
  Receive Date: 20220413
  Receipt Date: 20240328
  Transmission Date: 20240410
  Serious: No
  Sender: FDA-Public Use
  Company Number: US-PFIZER INC-202200409990

PATIENT
  Sex: Male

DRUGS (1)
  1. GENOTROPIN [Suspect]
     Active Substance: SOMATROPIN
     Dosage: UNK

REACTIONS (6)
  - Drug dose omission by device [Unknown]
  - Device breakage [Unknown]
  - Product dispensing error [Unknown]
  - Nervousness [Unknown]
  - Arthralgia [Unknown]
  - Insomnia [Unknown]
